FAERS Safety Report 7440244-8 (Version None)
Quarter: 2011Q2

REPORT INFORMATION
  Report Type: 
  Country: None (occurrence: None)
  Receive Date: 20110427
  Receipt Date: 20100707
  Transmission Date: 20111010
  Serious: No
  Sender: FDA-Public Use
  Company Number: US-PFIZER INC-2010063833

PATIENT
  Sex: Female
  Weight: 100 kg

DRUGS (2)
  1. ZIAC [Concomitant]
     Indication: BLOOD PRESSURE INCREASED
     Dosage: UNK
  2. ZITHROMAX [Suspect]
     Indication: SINUSITIS
     Dosage: 250 MG, 2X/DAY
     Dates: start: 20100520

REACTIONS (2)
  - EXPIRED DRUG ADMINISTERED [None]
  - CHEST DISCOMFORT [None]
